FAERS Safety Report 18945427 (Version 3)
Quarter: 2021Q2

REPORT INFORMATION
  Report Type: Report from Study
  Country: JP (occurrence: JP)
  Receive Date: 20210226
  Receipt Date: 20210429
  Transmission Date: 20210717
  Serious: Yes (Death, Disabling, Other)
  Sender: FDA-Public Use
  Company Number: JP-TAKEDA-2021TUS012481

PATIENT
  Age: 31 Year
  Sex: Male
  Weight: 59.2 kg

DRUGS (3)
  1. PONATINIB [Suspect]
     Active Substance: PONATINIB
     Indication: ACUTE LYMPHOCYTIC LEUKAEMIA
     Dosage: 15 MILLIGRAM, QD
     Route: 048
     Dates: start: 20180329, end: 20180402
  2. FLUCONAZOLE. [Concomitant]
     Active Substance: FLUCONAZOLE
     Indication: PROPHYLAXIS
     Dosage: UNK
     Route: 065
  3. PONATINIB [Suspect]
     Active Substance: PONATINIB
     Dosage: 15 MILLIGRAM, QD
     Route: 048
     Dates: start: 20180411, end: 20180417

REACTIONS (2)
  - Philadelphia positive acute lymphocytic leukaemia [Fatal]
  - Renal impairment [Not Recovered/Not Resolved]

NARRATIVE: CASE EVENT DATE: 20180402
